FAERS Safety Report 6493034-7 (Version None)
Quarter: 2009Q4

REPORT INFORMATION
  Report Type: 
  Country: None (occurrence: None)
  Receive Date: 20091214
  Receipt Date: 20091201
  Transmission Date: 20100525
  Serious: Yes (Other)
  Sender: FDA-Public Use
  Company Number: US-ROCHE-670353

PATIENT
  Sex: Male
  Weight: 65.7 kg

DRUGS (12)
  1. AVASTIN [Suspect]
     Indication: COLORECTAL CANCER METASTATIC
     Dosage: 5 MG/KG, Q2W
     Route: 042
     Dates: start: 20061006
  2. AVASTIN [Suspect]
     Dosage: 5 MG/KG, Q2W
     Route: 042
     Dates: start: 20090601, end: 20090909
  3. FOLINIC ACID [Suspect]
     Indication: COLORECTAL CANCER
     Route: 065
  4. FLUOROURACIL [Suspect]
     Indication: COLORECTAL CANCER
     Route: 065
  5. IRINOTECAN HCL [Suspect]
     Indication: COLORECTAL CANCER
     Route: 065
  6. ASPIRIN [Concomitant]
     Indication: DRUG USE FOR UNKNOWN INDICATION
     Dosage: 81 MG, QD
  7. METOPROLOL [Concomitant]
     Indication: DRUG USE FOR UNKNOWN INDICATION
     Dosage: 50 MG, QD
  8. BENAZEPRIL HYDROCHLORIDE [Concomitant]
     Indication: DRUG USE FOR UNKNOWN INDICATION
     Dosage: 20 MG, QD
  9. NEXIUM [Concomitant]
     Indication: DRUG USE FOR UNKNOWN INDICATION
     Dosage: 40 MG, QD
  10. REGLAN [Concomitant]
     Indication: DRUG USE FOR UNKNOWN INDICATION
  11. EMEND [Concomitant]
     Indication: DRUG USE FOR UNKNOWN INDICATION
  12. IRON [Concomitant]
     Indication: DRUG USE FOR UNKNOWN INDICATION

REACTIONS (1)
  - GASTROINTESTINAL PERFORATION [None]
